FAERS Safety Report 4498341-5 (Version None)
Quarter: 2004Q4

REPORT INFORMATION
  Report Type: 
  Country: None (occurrence: None)
  Receive Date: 20041104
  Receipt Date: 20041021
  Transmission Date: 20050328
  Serious: Yes (Hospitalization)
  Sender: FDA-Public Use
  Company Number: DEWYE131922OCT04

PATIENT
  Sex: Female

DRUGS (1)
  1. VENLAFAXINE HCL [Suspect]
     Dosage: 75 MG 1X PER 1 DAY, ORAL
     Route: 048

REACTIONS (2)
  - DRUG ABUSER [None]
  - DRUG EXPOSURE DURING PREGNANCY [None]
